FAERS Safety Report 7821034-0 (Version None)
Quarter: 2011Q4

REPORT INFORMATION
  Report Type: 
  Country: None (occurrence: None)
  Receive Date: 20111018
  Receipt Date: 20111008
  Transmission Date: 20120403
  Serious: Yes (Other)
  Sender: FDA-Public Use
  Company Number: US-MPIJNJ-2011-04849

PATIENT

DRUGS (1)
  1. VELCADE [Suspect]
     Indication: PRODUCT USED FOR UNKNOWN INDICATION
     Route: 058

REACTIONS (5)
  - PERONEAL NERVE PALSY [None]
  - TUMOUR LYSIS SYNDROME [None]
  - AUTONOMIC NEUROPATHY [None]
  - INJECTION SITE NODULE [None]
  - OFF LABEL USE [None]
